FAERS Safety Report 13862759 (Version 1)
Quarter: 2017Q3

REPORT INFORMATION
  Report Type: Report from Study
  Country: DE (occurrence: DE)
  Receive Date: 20170814
  Receipt Date: 20170814
  Transmission Date: 20171127
  Serious: Yes (Other)
  Sender: FDA-Public Use
  Company Number: DE-ROCHE-1977752

PATIENT
  Sex: Female
  Weight: 51 kg

DRUGS (21)
  1. LUCENTIS [Suspect]
     Active Substance: RANIBIZUMAB
     Dosage: 1X IN RIGHT EYE
     Route: 050
     Dates: start: 20160104
  2. LUCENTIS [Suspect]
     Active Substance: RANIBIZUMAB
     Dosage: 1X IN LEFT EYE
     Route: 050
     Dates: start: 20170123
  3. LUCENTIS [Suspect]
     Active Substance: RANIBIZUMAB
     Dosage: 1X IN LEFT EYE
     Route: 050
     Dates: start: 20161017
  4. LUCENTIS [Suspect]
     Active Substance: RANIBIZUMAB
     Dosage: 1X IN LEFT EYE
     Route: 050
     Dates: start: 20161212
  5. LUCENTIS [Suspect]
     Active Substance: RANIBIZUMAB
     Dosage: 1X IN RIGHT EYE
     Route: 050
     Dates: start: 20170313
  6. LUCENTIS [Suspect]
     Active Substance: RANIBIZUMAB
     Dosage: 1X IN LEFT EYE
     Route: 050
     Dates: start: 20170320
  7. LUCENTIS [Suspect]
     Active Substance: RANIBIZUMAB
     Dosage: 1X IN RIGHT EYE
     Route: 050
     Dates: start: 20160725
  8. LUCENTIS [Suspect]
     Active Substance: RANIBIZUMAB
     Indication: NEOVASCULAR AGE-RELATED MACULAR DEGENERATION
     Dosage: 1X IN RIGHT EYE
     Route: 050
     Dates: start: 20150907
  9. LUCENTIS [Suspect]
     Active Substance: RANIBIZUMAB
     Dosage: 1X IN RIGHT EYE
     Route: 050
     Dates: start: 20160523
  10. LUCENTIS [Suspect]
     Active Substance: RANIBIZUMAB
     Dosage: 1X IN LEFT EYE
     Route: 050
     Dates: start: 20160729
  11. LUCENTIS [Suspect]
     Active Substance: RANIBIZUMAB
     Dosage: 1X IN LEFT EYE
     Route: 050
     Dates: start: 20160919
  12. LUCENTIS [Suspect]
     Active Substance: RANIBIZUMAB
     Dosage: 1X IN RIGHT EYE
     Route: 050
     Dates: start: 20160215
  13. LUCENTIS [Suspect]
     Active Substance: RANIBIZUMAB
     Dosage: 1X IN RIGHT EYE
     Route: 050
     Dates: start: 20160321
  14. LUCENTIS [Suspect]
     Active Substance: RANIBIZUMAB
     Dosage: 1X IN RIGHT EYE
     Route: 050
     Dates: start: 20160905
  15. LUCENTIS [Suspect]
     Active Substance: RANIBIZUMAB
     Dosage: 1X IN RIGHT EYE
     Route: 050
     Dates: start: 20151005
  16. LUCENTIS [Suspect]
     Active Substance: RANIBIZUMAB
     Dosage: 1X IN RIGHT EYE
     Route: 050
     Dates: start: 20151109
  17. LUCENTIS [Suspect]
     Active Substance: RANIBIZUMAB
     Dosage: 1X IN RIGHT EYE
     Route: 050
     Dates: start: 20151207
  18. LUCENTIS [Suspect]
     Active Substance: RANIBIZUMAB
     Dosage: 1X IN RIGHT EYE
     Route: 050
     Dates: start: 20161031
  19. LUCENTIS [Suspect]
     Active Substance: RANIBIZUMAB
     Dosage: 1X IN LEFT EYE
     Route: 050
     Dates: start: 20161114
  20. LUCENTIS [Suspect]
     Active Substance: RANIBIZUMAB
     Dosage: 1X IN RIGHT EYE
     Route: 050
     Dates: start: 20170529, end: 20170529
  21. LUCENTIS [Suspect]
     Active Substance: RANIBIZUMAB
     Dosage: 1X IN RIGHT EYE
     Route: 050
     Dates: start: 20170102

REACTIONS (1)
  - Normal tension glaucoma [Unknown]

NARRATIVE: CASE EVENT DATE: 20170529
